FAERS Safety Report 11070377 (Version 5)
Quarter: 2017Q1

REPORT INFORMATION
  Report Type: Report from Study
  Country: PL (occurrence: PL)
  Receive Date: 20150427
  Receipt Date: 20170203
  Transmission Date: 20170428
  Serious: Yes (Other)
  Sender: FDA-Public Use
  Company Number: PHHY2015PL036835

PATIENT
  Age: 70 Year
  Sex: Female

DRUGS (2)
  1. AFINITOR [Suspect]
     Active Substance: EVEROLIMUS
     Indication: PANCREATIC NEUROENDOCRINE TUMOUR
     Dosage: 10 MG
     Route: 048
     Dates: start: 20140415
  2. AFINITOR [Suspect]
     Active Substance: EVEROLIMUS
     Dosage: UNK, QD
     Route: 048
     Dates: start: 20160112, end: 20161025

REACTIONS (21)
  - Hepatomegaly [Unknown]
  - Portal vein stenosis [Unknown]
  - Portal hypertension [Unknown]
  - Uterine leiomyoma [Unknown]
  - Pelvic fluid collection [Unknown]
  - Tumour necrosis [Unknown]
  - Spleen disorder [Unknown]
  - Lymphadenopathy [Unknown]
  - Renal cyst [Unknown]
  - Drug ineffective [Unknown]
  - Hepatic lesion [Unknown]
  - Metastases to liver [Unknown]
  - Peripheral venous disease [Unknown]
  - Uterine enlargement [Unknown]
  - Lung infiltration [Unknown]
  - Bone fragmentation [Unknown]
  - Pericardial effusion [Unknown]
  - Malignant neoplasm progression [Not Recovered/Not Resolved]
  - Arteriosclerosis [Unknown]
  - Fluid retention [Unknown]
  - General physical health deterioration [Unknown]

NARRATIVE: CASE EVENT DATE: 20140709
